FAERS Safety Report 4772537-7 (Version None)
Quarter: 2005Q3

REPORT INFORMATION
  Report Type: 
  Country: None (occurrence: None)
  Receive Date: 20050915
  Receipt Date: 20050915
  Transmission Date: 20060218
  Serious: Yes (Life-Threatening, Hospitalization)
  Sender: FDA-Public Use
  Company Number: None

PATIENT
  Sex: Female
  Weight: 51.2565 kg

DRUGS (1)
  1. NORDETTE-21 [Suspect]
     Dosage: 4 PILLS AND THEN 4 12 HRS LATE     PO
     Route: 048
     Dates: start: 20040125, end: 20040126

REACTIONS (6)
  - DYSPHAGIA [None]
  - EYE HAEMORRHAGE [None]
  - MALAISE [None]
  - RASH [None]
  - SWELLING FACE [None]
  - VOMITING PROJECTILE [None]
